FAERS Safety Report 16863604 (Version 1)
Quarter: 2019Q3

REPORT INFORMATION
  Report Type: Spontaneous
  Country: GB (occurrence: GB)
  Receive Date: 20190927
  Receipt Date: 20190927
  Transmission Date: 20191005
  Serious: Yes (Hospitalization, Other)
  Sender: FDA-Public Use
  Company Number: GB-BAYER-2019-171757

PATIENT
  Age: 59 Year
  Sex: Male

DRUGS (1)
  1. XOFIGO [Suspect]
     Active Substance: RADIUM RA-223 DICHLORIDE
     Indication: PROSTATE CANCER
     Dosage: UNK
     Dates: start: 201908, end: 201908

REACTIONS (4)
  - Cerebral haemorrhage [None]
  - Headache [None]
  - Disseminated intravascular coagulation [None]
  - Swollen tongue [None]

NARRATIVE: CASE EVENT DATE: 201908
